FAERS Safety Report 9838314 (Version 1)
Quarter: 2013Q4

REPORT INFORMATION
  Report Type: Spontaneous
  Country: US (occurrence: None)
  Receive Date: 20131205
  Receipt Date: 20131205
  Transmission Date: 20140711
  Serious: Yes (Hospitalization, Other)
  Sender: FDA-Public Use
  Company Number: 163-POMAL-13093065

PATIENT
  Age: 47 Year
  Sex: Male

DRUGS (8)
  1. POMALYST [Suspect]
     Indication: PLASMA CELL MYELOMA
     Dosage: 4 MG, 21 IN 21 D, PO
     Route: 048
     Dates: start: 201309, end: 20131017
  2. ATIVAN (LORAZEPAM) [Concomitant]
  3. AMBIEN (ZOLPIDEM TARTRATE) [Concomitant]
  4. LORTAB (VICODIN) [Concomitant]
  5. METFORMIN (METFORMIN) [Concomitant]
  6. COUMADIN (WARFARIN SODIUM) [Concomitant]
  7. CELEXA (CITALOPRAM HYDROBROMIDE) [Concomitant]
  8. RAMIPRIL (RAMIPRIL) [Concomitant]

REACTIONS (2)
  - Anaemia [None]
  - Plasma cell myeloma [None]
